FAERS Safety Report 6993941-2 (Version None)
Quarter: 2010Q3

REPORT INFORMATION
  Report Type: 
  Country: None (occurrence: None)
  Receive Date: 20100917
  Receipt Date: 20090717
  Transmission Date: 20110219
  Serious: Yes (Other)
  Sender: FDA-Public Use
  Company Number: US-ASTRAZENECA-2007UW03826

PATIENT
  Age: 19376 Day
  Sex: Male

DRUGS (19)
  1. SEROQUEL [Suspect]
     Indication: DEPRESSION
     Route: 048
     Dates: start: 19990111
  2. SEROQUEL [Suspect]
     Dosage: 200-400 MG, DAILY
     Route: 048
     Dates: start: 19990423
  3. SEROQUEL [Suspect]
     Dosage: 25-300 MG
     Route: 048
     Dates: start: 20030919
  4. AVANDIA [Concomitant]
     Route: 048
  5. FLUOXETINE [Concomitant]
     Route: 048
  6. ISOSORBIDE MONONITRATE [Concomitant]
     Route: 048
  7. LORAZEPAM [Concomitant]
     Route: 048
  8. LORAZEPAM [Concomitant]
  9. STARLIX [Concomitant]
     Route: 048
  10. METFORMIN [Concomitant]
     Dosage: 500-1000 MG
     Route: 048
  11. HYZAAR [Concomitant]
     Dosage: 12.5-100 MG
     Route: 048
  12. PROTONIX [Concomitant]
     Route: 048
  13. HALOPERIDOL [Concomitant]
     Dosage: 5 MG/ML
     Route: 065
  14. PROMETHAZINE [Concomitant]
     Dosage: 25 TO 50 MG
     Route: 065
  15. CLONAZEPAM [Concomitant]
     Dosage: 0.5 TO 1 MG
     Route: 048
  16. FUROSEMIDE [Concomitant]
     Route: 048
  17. NITROGLYCERIN [Concomitant]
     Route: 048
  18. PRILOSEC OTC [Concomitant]
     Route: 048
  19. PAXIL [Concomitant]
     Dates: start: 19990111

REACTIONS (2)
  - PANCREATITIS ACUTE [None]
  - TYPE 2 DIABETES MELLITUS [None]
